FAERS Safety Report 25167180 (Version 1)
Quarter: 2025Q2

REPORT INFORMATION
  Report Type: Spontaneous
  Country: US (occurrence: None)
  Receive Date: 20250404
  Receipt Date: 20250404
  Transmission Date: 20250716
  Serious: Yes (Hospitalization)
  Sender: FDA-CTU
  Company Number: None

PATIENT
  Age: 62 Year
  Sex: Male

DRUGS (11)
  1. MYCOPHENOLIC ACID [Suspect]
     Active Substance: MYCOPHENOLIC ACID
     Indication: Renal transplant
     Dosage: FREQUENCY : DAILY;?
     Route: 048
  2. TACROLIMUS [Suspect]
     Active Substance: TACROLIMUS
     Dosage: FREQUENCY : TWICE A DAY;?
     Route: 048
     Dates: start: 20231122
  3. METOPROLOL ER 50MG [Concomitant]
     Dates: start: 20230831
  4. GABAPENTI N 600MG [Concomitant]
     Dates: start: 20231214
  5. DOXAZOSIN MESYLATE [Concomitant]
     Active Substance: DOXAZOSIN MESYLATE
     Dates: start: 20240723
  6. FAMOTIDINE [Concomitant]
     Active Substance: FAMOTIDINE
     Dates: start: 20240506
  7. PREDNISONE [Concomitant]
     Active Substance: PREDNISONE
     Dates: start: 20240318
  8. VITAMIN D2 [Concomitant]
     Active Substance: ERGOCALCIFEROL
  9. TRAMADOL [Concomitant]
     Active Substance: TRAMADOL
     Dates: start: 20240701
  10. PRAVASTATIN [Concomitant]
     Active Substance: PRAVASTATIN
     Dates: start: 20231010
  11. NIFEDIPINE 60MG ER (XL/OS) [Concomitant]
     Dates: start: 20240723

REACTIONS (1)
  - Influenza [None]

NARRATIVE: CASE EVENT DATE: 20250314
